FAERS Safety Report 5831573-X (Version None)
Quarter: 2008Q3

REPORT INFORMATION
  Report Type: 
  Country: None (occurrence: None)
  Receive Date: 20080801
  Receipt Date: 20080722
  Transmission Date: 20090109
  Serious: Yes (Other)
  Sender: FDA-Public Use
  Company Number: BR-PFIZER INC-2008061777

PATIENT
  Age: 11 Year
  Sex: Male

DRUGS (3)
  1. LIPITOR [Suspect]
     Indication: BLOOD CHOLESTEROL
     Route: 048
  2. LIPITOR [Suspect]
     Indication: BLOOD TRIGLYCERIDES
  3. FLUOXETINE [Suspect]
     Route: 048

REACTIONS (6)
  - CRYING [None]
  - FATIGUE [None]
  - NERVOUSNESS [None]
  - SCHOOL REFUSAL [None]
  - SUICIDAL IDEATION [None]
  - WEIGHT INCREASED [None]
